FAERS Safety Report 7817175-4 (Version None)
Quarter: 2011Q4

REPORT INFORMATION
  Report Type: 
  Country: None (occurrence: None)
  Receive Date: 20111017
  Receipt Date: 20111017
  Transmission Date: 20120403
  Serious: No
  Sender: FDA-Public Use
  Company Number: None

PATIENT
  Age: 54 Year
  Sex: Female
  Weight: 81.646 kg

DRUGS (1)
  1. COLD EEZE ZINC LOZENGES [Suspect]
     Indication: NASOPHARYNGITIS
     Dosage: 6 LOZENGES
     Route: 048
     Dates: start: 20110616, end: 20110623

REACTIONS (1)
  - PAROSMIA [None]
